FAERS Safety Report 8798426 (Version 2)
Quarter: 2013Q3

REPORT INFORMATION
  Report Type: Spontaneous
  Country: US (occurrence: US)
  Receive Date: 20120920
  Receipt Date: 20130906
  Transmission Date: 20140515
  Serious: No
  Sender: FDA-Public Use
  Company Number: US-B.I. PHARMACEUTICALS,INC./RIDGEFIELD-2012-BP-22417BP

PATIENT
  Sex: Male

DRUGS (10)
  1. PRADAXA [Suspect]
     Indication: ATRIAL FIBRILLATION
     Dosage: 300 MG
     Route: 048
     Dates: start: 201201
  2. PRADAXA [Suspect]
     Dosage: 300 MG
     Route: 048
     Dates: start: 2011
  3. LISINOPRIL [Concomitant]
     Indication: HYPERTENSION
     Dosage: 40 MG
     Route: 048
  4. LISINOPRIL [Concomitant]
     Indication: HYPERTENSION
     Dosage: STRENGHT: 20/12.5, DAILY DOSE: 20/12.5
     Route: 048
  5. LISINOPRIL [Concomitant]
     Dosage: 20 MG
     Route: 048
  6. DIURETIC [Concomitant]
     Indication: HYPERTENSION
     Dosage: 20 MG
     Route: 048
  7. NIFEDIPINE [Concomitant]
     Indication: HYPERTENSION
     Dosage: 60 MG
     Route: 048
  8. ATENOLOL [Concomitant]
     Indication: HYPERTENSION
     Dosage: 100 MG
     Route: 048
  9. POTASSIUM [Concomitant]
     Indication: CARDIAC DISORDER
  10. AMLODIPINE [Concomitant]
     Dosage: 10 MG
     Route: 048

REACTIONS (4)
  - Blood urine present [Not Recovered/Not Resolved]
  - Contusion [Not Recovered/Not Resolved]
  - Prostatic specific antigen increased [Unknown]
  - Mitral valve repair [Not Recovered/Not Resolved]
